FAERS Safety Report 6245443-9 (Version None)
Quarter: 2009Q2

REPORT INFORMATION
  Report Type: 
  Country: None (occurrence: None)
  Receive Date: 20090619
  Receipt Date: 20090326
  Transmission Date: 20091009
  Serious: No
  Sender: FDA-Public Use
  Company Number: ALL1-2009-00675

PATIENT
  Age: 9 Year
  Sex: Female
  Weight: 26.8 kg

DRUGS (1)
  1. VYVANSE [Suspect]
     Indication: ATTENTION DEFICIT/HYPERACTIVITY DISORDER
     Dosage: 20 MG, 1X/DAY:QD, ORAL
     Route: 048
     Dates: start: 20090311, end: 20090312

REACTIONS (7)
  - ANXIETY [None]
  - CRYING [None]
  - DYSPNOEA [None]
  - FEAR [None]
  - HEART RATE INCREASED [None]
  - TIC [None]
  - TREMOR [None]
